FAERS Safety Report 23776853 (Version 1)
Quarter: 2024Q2

REPORT INFORMATION
  Report Type: Spontaneous
  Country: GB (occurrence: GB)
  Receive Date: 20240424
  Receipt Date: 20240424
  Transmission Date: 20240716
  Serious: Yes (Other)
  Sender: FDA-Public Use
  Company Number: GB-SUN PHARMACEUTICAL INDUSTRIES LTD-2024RR-443652

PATIENT
  Age: 68 Year
  Sex: Female
  Weight: 81 kg

DRUGS (5)
  1. ROSUVASTATIN [Suspect]
     Active Substance: ROSUVASTATIN
     Indication: Product used for unknown indication
     Dosage: 5 MILLIGRAM, QD
     Route: 065
     Dates: start: 20230927
  2. DULOXETINE [Concomitant]
     Active Substance: DULOXETINE
     Indication: Product used for unknown indication
     Dosage: TAKE ONE CAPSULE TWICE A DAY, AFTER 3 DAYS INCR...
     Route: 065
     Dates: start: 20231114
  3. LEVOTHYROXINE [Concomitant]
     Active Substance: LEVOTHYROXINE\LEVOTHYROXINE SODIUM
     Indication: Product used for unknown indication
     Dosage: 1 DOSAGE FORM, EACH MORNING FOR THYROID
     Route: 065
     Dates: start: 20230216
  4. NAPROXEN [Concomitant]
     Active Substance: NAPROXEN
     Indication: Product used for unknown indication
     Dosage: 1 DOSAGE FORM, BID, WITH FOOD
     Route: 065
     Dates: start: 20230216
  5. OMEPRAZOLE [Concomitant]
     Active Substance: OMEPRAZOLE
     Indication: Product used for unknown indication
     Dosage: 1 DOSAGE FORM, QD, WHILE TAKING NAPROXEN
     Route: 065
     Dates: start: 20230216

REACTIONS (3)
  - Myalgia [Recovering/Resolving]
  - Oral pain [Recovering/Resolving]
  - Pruritus [Unknown]
